FAERS Safety Report 16322025 (Version 8)
Quarter: 2020Q4

REPORT INFORMATION
  Report Type: Spontaneous
  Country: JP (occurrence: JP)
  Receive Date: 20190516
  Receipt Date: 20201207
  Transmission Date: 20210113
  Serious: Yes (Hospitalization, Other)
  Sender: FDA-Public Use
  Company Number: JP-BRISTOL-MYERS SQUIBB COMPANY-BMS-2019-047896

PATIENT
  Age: 83 Year
  Sex: Female

DRUGS (2)
  1. OPDIVO [Suspect]
     Active Substance: NIVOLUMAB
     Indication: MALIGNANT MELANOMA
     Dosage: 80 MILLIGRAM, Q3WK  (1 MG/KG)
     Route: 041
     Dates: start: 20180824, end: 20181126
  2. YERVOY [Suspect]
     Active Substance: IPILIMUMAB
     Indication: MALIGNANT MELANOMA
     Dosage: 177 MILLIGRAM, Q3WK (3 MG/KG)
     Route: 041
     Dates: start: 20180824, end: 20181126

REACTIONS (9)
  - Pancytopenia [Recovered/Resolved]
  - Hepatic enzyme increased [Unknown]
  - Colitis [Recovering/Resolving]
  - Enteritis [Recovering/Resolving]
  - Leukoderma [Not Recovered/Not Resolved]
  - Interstitial lung disease [Recovering/Resolving]
  - Autoimmune aplastic anaemia [Recovering/Resolving]
  - Malignant neoplasm progression [Unknown]
  - Heliotrope rash [Recovering/Resolving]

NARRATIVE: CASE EVENT DATE: 20180905
